FAERS Safety Report 9190725 (Version 2)
Quarter: 2013Q1

REPORT INFORMATION
  Report Type: Spontaneous
  Country: JP (occurrence: None)
  Receive Date: 20130322
  Receipt Date: 20130328
  Transmission Date: 20140127
  Serious: Yes (Hospitalization)
  Sender: FDA-Public Use
  Company Number: TCI2013A01516

PATIENT
  Age: 75 Year
  Sex: Female

DRUGS (8)
  1. TAKEPRON  OD  TABLETS  15  (LANSOPRAZOLE) [Suspect]
     Indication: GASTROOESOPHAGEAL REFLUX DISEASE
     Dosage: 15  MG  (15  MG,  1  IN 1 D)?PER  ORAL?UNK.  -  08/M      UNK  -  08/MAR/2013
     Route: 048
     Dates: end: 20130308
  2. TRERIEF [Suspect]
     Dosage: 25  MG  (25  MG,  1  D)?PER  ORAL?UNK.  -  08/M      UNK.  -  08/MAR/2013
     Route: 048
     Dates: end: 20130308
  3. REQUIP  (ROPINIROLE  HYDROCHLORIDE) [Concomitant]
     Route: 048
  4. DEPAS  (ETIZOLAM) [Concomitant]
  5. PANTOSIN  (PANTETHINE) [Concomitant]
  6. DOPS  (DROXIDOPA) [Concomitant]
  7. GASMOTIN  (MOSAPRIDE  CITRATE) [Concomitant]
  8. MENESIT  (LEVODOPA,  CARBIDOPA) [Concomitant]

REACTIONS (5)
  - Hypophagia [None]
  - Asthenia [None]
  - Platelet count decreased [None]
  - Pyrexia [None]
  - Malaise [None]
